FAERS Safety Report 7792158-1 (Version None)
Quarter: 2011Q4

REPORT INFORMATION
  Report Type: 
  Country: None (occurrence: None)
  Receive Date: 20111003
  Receipt Date: 20111003
  Transmission Date: 20120403
  Serious: Yes (Other)
  Sender: FDA-Public Use
  Company Number: None

PATIENT
  Age: 68 Year
  Sex: Male
  Weight: 85.275 kg

DRUGS (1)
  1. CREST PRO-HEALTH FLUORIDE RINSE [Suspect]
     Indication: DENTAL FLUORIDE THERAPY
     Dosage: 10ML
     Route: 048
     Dates: start: 20110905, end: 20110912

REACTIONS (3)
  - PARAESTHESIA ORAL [None]
  - HYPOGEUSIA [None]
  - PRODUCT LABEL ISSUE [None]
